FAERS Safety Report 7282491-4 (Version None)
Quarter: 2011Q1

REPORT INFORMATION
  Report Type: 
  Country: None (occurrence: None)
  Receive Date: 20110209
  Receipt Date: 20110131
  Transmission Date: 20110831
  Serious: Yes (Death, Other)
  Sender: FDA-Public Use
  Company Number: ES-CELGENEUS-144-50794-11020108

PATIENT
  Age: 70 Year
  Sex: Female

DRUGS (8)
  1. CHINOLONES [Suspect]
     Indication: PROPHYLAXIS
     Route: 065
  2. FLUCONAZOLE [Suspect]
     Indication: PROPHYLAXIS
     Route: 065
  3. ANTIBIOTICS [Concomitant]
     Route: 065
  4. RED BLOOD CELLS [Concomitant]
     Route: 065
  5. INSULIN [Concomitant]
     Route: 065
  6. VIDAZA [Suspect]
     Indication: ACUTE MYELOID LEUKAEMIA
     Route: 058
     Dates: start: 20080801
  7. NEUPOGEN [Concomitant]
     Route: 065
  8. ERYTHROPOETIN [Concomitant]
     Indication: ANAEMIA
     Route: 065

REACTIONS (4)
  - INFECTION [None]
  - URINARY TRACT INFECTION [None]
  - ACUTE MYELOID LEUKAEMIA [None]
  - NEOPLASM SKIN [None]
